FAERS Safety Report 6790581-5 (Version None)
Quarter: 2010Q2

REPORT INFORMATION
  Report Type: 
  Country: None (occurrence: None)
  Receive Date: 20100624
  Receipt Date: 20100621
  Transmission Date: 20101027
  Serious: Yes (Hospitalization)
  Sender: FDA-Public Use
  Company Number: US-PERRIGO-10US009774

PATIENT
  Sex: Female
  Weight: 72.562 kg

DRUGS (4)
  1. NICOTINE POLACRILEX 2MG MINT COATED 456 [Suspect]
     Indication: SMOKING CESSATION THERAPY
     Dosage: 2 MG, EVERY 1/2 TO 1 HOUR FOR A TOTAL OF 20-30 PIECES A DAY
     Route: 048
     Dates: start: 20060613, end: 20100524
  2. NICOTINE [Concomitant]
     Indication: SMOKING CESSATION THERAPY
     Dosage: 2 MG, EVERY 1/2 TO 1 HOUR FOR A TOTAL OF 20-30 PIECES DAILY
     Route: 048
     Dates: start: 20050105, end: 20060612
  3. KLONOPIN [Concomitant]
     Indication: INSOMNIA
     Dosage: 3 MG, QD NIGHT
     Route: 048
     Dates: start: 19800101
  4. BENADRYL [Concomitant]
     Indication: INSOMNIA
     Dosage: 20 MG, QD NIGHT
     Route: 048
     Dates: start: 20050101

REACTIONS (11)
  - ABDOMINAL DISCOMFORT [None]
  - CONDITION AGGRAVATED [None]
  - DIARRHOEA [None]
  - DYSPNOEA [None]
  - EMPHYSEMA [None]
  - FLATULENCE [None]
  - GASTROENTERITIS VIRAL [None]
  - INCORRECT DOSE ADMINISTERED [None]
  - INCORRECT DRUG ADMINISTRATION DURATION [None]
  - STOMATITIS [None]
  - TOBACCO ABUSE [None]
